FAERS Safety Report 6435041-6 (Version None)
Quarter: 2009Q4

REPORT INFORMATION
  Report Type: 
  Country: None (occurrence: None)
  Receive Date: 20091110
  Receipt Date: 20091029
  Transmission Date: 20100525
  Serious: Yes (Other)
  Sender: FDA-Public Use
  Company Number: US-JNJFOC-20091100105

PATIENT
  Sex: Male
  Weight: 104.33 kg

DRUGS (6)
  1. DURAGESIC-100 [Suspect]
     Indication: GROIN PAIN
     Route: 062
  2. AMBIEN CR [Concomitant]
     Indication: INSOMNIA
     Route: 048
  3. AVAPRO [Concomitant]
     Indication: HYPERTENSION
     Route: 048
  4. NEXIUM [Concomitant]
     Indication: GASTRIC DISORDER
     Route: 048
  5. LORTAB [Concomitant]
     Indication: PAIN
     Route: 048
  6. LAMICTAL [Concomitant]
     Indication: DRUG THERAPY
     Route: 048

REACTIONS (14)
  - ABDOMINAL PAIN [None]
  - AGITATION [None]
  - DIZZINESS [None]
  - DRUG DOSE OMISSION [None]
  - DYSGEUSIA [None]
  - EMOTIONAL DISORDER [None]
  - FEELING JITTERY [None]
  - HEART RATE INCREASED [None]
  - NAUSEA [None]
  - NERVOUSNESS [None]
  - OBSESSIVE-COMPULSIVE DISORDER [None]
  - PAIN [None]
  - PRODUCT QUALITY ISSUE [None]
  - VERTIGO [None]
